FAERS Safety Report 13942367 (Version 7)
Quarter: 2018Q3

REPORT INFORMATION
  Report Type: Report from Study
  Country: PA (occurrence: PA)
  Receive Date: 20170907
  Receipt Date: 20180910
  Transmission Date: 20181010
  Serious: Yes (Hospitalization, Other)
  Sender: FDA-Public Use
  Company Number: PHHY2017PA129637

PATIENT
  Sex: Male
  Weight: 73 kg

DRUGS (4)
  1. DICLOFENAC [Suspect]
     Active Substance: DICLOFENAC
     Indication: PRODUCT USED FOR UNKNOWN INDICATION
     Route: 065
  2. ACETAMINOPHEN. [Concomitant]
     Active Substance: ACETAMINOPHEN
     Indication: PRODUCT USED FOR UNKNOWN INDICATION
     Route: 065
  3. EXJADE [Suspect]
     Active Substance: DEFERASIROX
     Indication: SICKLE CELL ANAEMIA
     Dosage: 500 MG, QD
     Route: 065
  4. EXJADE [Suspect]
     Active Substance: DEFERASIROX
     Dosage: 500 MG, QD
     Route: 065

REACTIONS (8)
  - Haemoglobin decreased [Unknown]
  - Back pain [Unknown]
  - Sickle cell anaemia with crisis [None]
  - Discomfort [Unknown]
  - Infection [Unknown]
  - Infected skin ulcer [Recovering/Resolving]
  - Pyrexia [Unknown]
  - Abdominal pain upper [Unknown]
